FAERS Safety Report 6121797-9 (Version None)
Quarter: 2009Q1

REPORT INFORMATION
  Report Type: 
  Country: None (occurrence: None)
  Receive Date: 20090317
  Receipt Date: 20090303
  Transmission Date: 20090719
  Serious: Yes (Hospitalization)
  Sender: FDA-Public Use
  Company Number: SE-GENENTECH-278916

PATIENT

DRUGS (3)
  1. BEVACIZUMAB [Suspect]
     Indication: COLORECTAL CANCER METASTATIC
     Dosage: 510 MG, UNK
     Dates: start: 20081219
  2. CAPECITABINE [Suspect]
     Indication: COLORECTAL CANCER
     Dosage: 1800 MG, UNK
     Dates: start: 20081219
  3. OXALIPLATIN [Suspect]
     Indication: COLORECTAL CANCER
     Dosage: 234 MG, UNK
     Dates: start: 20081219

REACTIONS (2)
  - PERICARDITIS [None]
  - VOMITING [None]
